FAERS Safety Report 8082960-3 (Version None)
Quarter: 2012Q1

REPORT INFORMATION
  Report Type: 
  Country: None (occurrence: None)
  Receive Date: 20120127
  Receipt Date: 20110309
  Transmission Date: 20120608
  Serious: No
  Sender: FDA-Public Use
  Company Number: US-ABBOTT-11P-163-0710382-00

PATIENT
  Age: 26 Year
  Sex: Female

DRUGS (3)
  1. ACETAMINOPHEN [Concomitant]
     Indication: HEADACHE
  2. HUMIRA [Suspect]
     Indication: CROHN'S DISEASE
     Dates: start: 20101101
  3. LIALDA [Concomitant]
     Indication: CROHN'S DISEASE
     Dosage: 1.2GM X 2 TABLETS DAILY

REACTIONS (2)
  - SINUS CONGESTION [None]
  - FATIGUE [None]
